FAERS Safety Report 7683253-6 (Version None)
Quarter: 2011Q3

REPORT INFORMATION
  Report Type: 
  Country: None (occurrence: None)
  Receive Date: 20110815
  Receipt Date: 20110809
  Transmission Date: 20111222
  Serious: Yes (Life-Threatening, Hospitalization, Other)
  Sender: FDA-Public Use
  Company Number: US-ASTRAZENECA-2011SE47626

PATIENT
  Age: 47 Year
  Sex: Male
  Weight: 63.5 kg

DRUGS (11)
  1. ACCOLATE [Concomitant]
     Indication: ASTHMA
  2. ACTOS [Concomitant]
     Indication: DIABETES MELLITUS
  3. NEURONTIN [Suspect]
     Indication: DIABETIC NEUROPATHY
     Route: 065
  4. CALCIUM CARBONATE [Suspect]
     Indication: GASTROOESOPHAGEAL REFLUX DISEASE
     Route: 065
  5. CYMBALTA [Concomitant]
     Indication: DEPRESSION
  6. NEXIUM [Suspect]
     Indication: GASTROOESOPHAGEAL REFLUX DISEASE
     Route: 048
  7. PRILOSEC [Suspect]
     Indication: GASTROOESOPHAGEAL REFLUX DISEASE
     Route: 048
  8. METFORMIN HCL [Concomitant]
     Indication: DIABETES MELLITUS
  9. REGLAN [Suspect]
     Indication: GASTROOESOPHAGEAL REFLUX DISEASE
     Route: 065
  10. PROTONIX [Suspect]
     Indication: GASTROOESOPHAGEAL REFLUX DISEASE
     Route: 065
  11. ABILIFY [Concomitant]
     Indication: BIPOLAR DISORDER

REACTIONS (5)
  - PNEUMONIA [None]
  - LIGAMENT SPRAIN [None]
  - BLOOD GLUCOSE INCREASED [None]
  - DRUG INEFFECTIVE [None]
  - DIABETIC COMA [None]
